FAERS Safety Report 9501260 (Version 1)
Quarter: 2013Q1

REPORT INFORMATION
  Report Type: Spontaneous
  Country: US (occurrence: None)
  Receive Date: 20130118
  Receipt Date: 20130118
  Transmission Date: 20140127
  Serious: Yes (Other)
  Sender: FDA-Public Use
  Company Number: A-US2012-63504

PATIENT
  Sex: Male

DRUGS (5)
  1. TRACLEER  (BOSENTAN) [Suspect]
     Indication: PULMONARY ARTERIAL HYPERTENSION
     Dosage: 6, ORAL
     Route: 048
     Dates: start: 20120301, end: 20120328
  2. SILDENAFIL (SILDENAFIL) [Concomitant]
  3. FUROSEMIDE (FUROSEMIDE) [Concomitant]
  4. RANITIDINE (RANITIDINE) [Concomitant]
  5. IRON (IRON) [Concomitant]

REACTIONS (5)
  - Liver function test abnormal [None]
  - Aspartate aminotransferase increased [None]
  - Alanine aminotransferase increased [None]
  - Pyrexia [None]
  - Diarrhoea [None]
